FAERS Safety Report 10307346 (Version 1)
Quarter: 2014Q3

REPORT INFORMATION
  Report Type: Spontaneous
  Country: NL (occurrence: NL)
  Receive Date: 20140716
  Receipt Date: 20140716
  Transmission Date: 20150326
  Serious: Yes (Death)
  Sender: FDA-Public Use
  Company Number: NL-AMGEN-NLDSP2014052136

PATIENT
  Age: 67 Year
  Sex: Female

DRUGS (1)
  1. XGEVA [Suspect]
     Active Substance: DENOSUMAB
     Indication: PROPHYLAXIS
     Dosage: 1.7 ML, (70MG/ML) Q4WK
     Route: 058
     Dates: start: 20140506, end: 20140709

REACTIONS (1)
  - Death [Fatal]

NARRATIVE: CASE EVENT DATE: 20140709
